FAERS Safety Report 24790207 (Version 1)
Quarter: 2024Q4

REPORT INFORMATION
  Report Type: Spontaneous
  Country: US (occurrence: US)
  Receive Date: 20241230
  Receipt Date: 20241230
  Transmission Date: 20250115
  Serious: Yes (Hospitalization)
  Sender: PHARMAESSENTIA
  Company Number: US-PHARMAESSENTIA-US-2024-PEC-005508

PATIENT
  Sex: Female

DRUGS (1)
  1. BESREMI [Suspect]
     Active Substance: ROPEGINTERFERON ALFA-2B-NJFT
     Indication: Polycythaemia vera
     Dosage: 150 MCG, Q2W
     Route: 058
     Dates: start: 202401

REACTIONS (2)
  - Pulmonary oedema [Recovering/Resolving]
  - Atrial fibrillation [Recovering/Resolving]
